FAERS Safety Report 5077004-1 (Version None)
Quarter: 2006Q3

REPORT INFORMATION
  Report Type: 
  Country: None (occurrence: None)
  Receive Date: 20060810
  Receipt Date: 20060517
  Transmission Date: 20061208
  Serious: No
  Sender: FDA-Public Use
  Company Number: CHPA2006US04552

PATIENT
  Age: 27 Year
  Sex: Female
  Weight: 68.2 kg

DRUGS (2)
  1. PAXIL [Suspect]
     Dosage: 40MG PER DAY
  2. COMTREX (US) [Suspect]
     Indication: SEASONAL ALLERGY
     Route: 048
     Dates: start: 20060504, end: 20060505

REACTIONS (2)
  - ANXIETY [None]
  - INSOMNIA [None]
